FAERS Safety Report 9674230 (Version 3)
Quarter: 2013Q4

REPORT INFORMATION
  Report Type: Report from Study
  Country: CA (occurrence: CA)
  Receive Date: 20131107
  Receipt Date: 20131226
  Transmission Date: 20140711
  Serious: Yes (Other)
  Sender: FDA-Public Use
  Company Number: CA-ROCHE-1144680

PATIENT
  Sex: Female
  Weight: 55 kg

DRUGS (4)
  1. ACTEMRA [Suspect]
     Indication: RHEUMATOID ARTHRITIS
     Route: 042
     Dates: start: 20120117
  2. CELEBREX [Concomitant]
  3. SYNPHASIC [Concomitant]
  4. OMEGA 3 [Concomitant]

REACTIONS (7)
  - Mouth ulceration [Recovered/Resolved]
  - Upper respiratory tract infection [Unknown]
  - Nasal congestion [Unknown]
  - Mass [Unknown]
  - Malaise [Unknown]
  - Speech disorder [Not Recovered/Not Resolved]
  - Aphthous stomatitis [Unknown]
